FAERS Safety Report 10250262 (Version 2)
Quarter: 2014Q3

REPORT INFORMATION
  Report Type: Spontaneous
  Country: US (occurrence: US)
  Receive Date: 20140620
  Receipt Date: 20140721
  Transmission Date: 20150326
  Serious: Yes (Other)
  Sender: FDA-Public Use
  Company Number: US-JNJFOC-20140605242

PATIENT
  Sex: Female
  Weight: 81.65 kg

DRUGS (10)
  1. FENTANYL TRANSDERMAL SYSTEM [Suspect]
     Active Substance: FENTANYL
     Indication: NECK SURGERY
     Route: 062
  2. DURAGESIC [Suspect]
     Active Substance: FENTANYL
     Indication: NECK SURGERY
     Route: 062
  3. FENTANYL TRANSDERMAL SYSTEM [Suspect]
     Active Substance: FENTANYL
     Indication: BACK PAIN
     Route: 062
  4. DURAGESIC [Suspect]
     Active Substance: FENTANYL
     Indication: NECK SURGERY
     Route: 062
     Dates: start: 2006
  5. DURAGESIC [Suspect]
     Active Substance: FENTANYL
     Indication: NECK SURGERY
     Route: 062
     Dates: start: 2014
  6. DURAGESIC [Suspect]
     Active Substance: FENTANYL
     Indication: BACK PAIN
     Route: 062
  7. AMBIEN [Suspect]
     Active Substance: ZOLPIDEM TARTRATE
     Indication: SLEEP DISORDER THERAPY
     Route: 065
  8. DURAGESIC [Suspect]
     Active Substance: FENTANYL
     Indication: BACK PAIN
     Route: 062
     Dates: start: 2014
  9. DURAGESIC [Suspect]
     Active Substance: FENTANYL
     Indication: BACK PAIN
     Route: 062
     Dates: start: 2006
  10. CYMBALTA [Concomitant]
     Active Substance: DULOXETINE HYDROCHLORIDE
     Indication: DEPRESSION
     Route: 065
     Dates: start: 2007

REACTIONS (7)
  - Insomnia [Unknown]
  - Wrong technique in drug usage process [Unknown]
  - Amnesia [Recovered/Resolved]
  - Drug level decreased [Recovered/Resolved]
  - Product quality issue [Unknown]
  - Breakthrough pain [Not Recovered/Not Resolved]
  - Product quality issue [Unknown]

NARRATIVE: CASE EVENT DATE: 2014
